FAERS Safety Report 9417011 (Version 2)
Quarter: 2013Q3

REPORT INFORMATION
  Report Type: Report from Study
  Country: DE (occurrence: DE)
  Receive Date: 20130724
  Receipt Date: 20130731
  Transmission Date: 20140515
  Serious: Yes (Other)
  Sender: FDA-Public Use
  Company Number: DE-ROCHE-1248251

PATIENT
  Age: 66 Year
  Sex: Female
  Weight: 93 kg

DRUGS (3)
  1. VISMODEGIB [Suspect]
     Indication: NEOPLASM MALIGNANT
     Route: 048
     Dates: start: 20130521
  2. VISMODEGIB [Suspect]
     Dosage: LAST DOSE PRIOR TO SAE : 09/JUL/2013
     Route: 048
     Dates: start: 20130618, end: 20130710
  3. BROMAZEPAM [Concomitant]
     Indication: PANIC ATTACK
     Route: 065
     Dates: start: 1965

REACTIONS (1)
  - Gamma-glutamyltransferase increased [Not Recovered/Not Resolved]
